FAERS Safety Report 5066696-9 (Version None)
Quarter: 2006Q3

REPORT INFORMATION
  Report Type: 
  Country: None (occurrence: None)
  Receive Date: 20060801
  Receipt Date: 20060725
  Transmission Date: 20061208
  Serious: Yes (Hospitalization)
  Sender: FDA-Public Use
  Company Number: FR-GLAXOSMITHKLINE-B0432166A

PATIENT
  Age: 21 Year
  Sex: Male

DRUGS (5)
  1. ZINNAT [Suspect]
     Route: 048
     Dates: start: 20051001
  2. NIFLUGEL [Suspect]
     Route: 061
     Dates: start: 20050801
  3. MOBIC [Suspect]
     Route: 048
     Dates: start: 20050801
  4. ACIDE TIAPROFENIQUE [Suspect]
     Route: 048
     Dates: start: 20050801
  5. DEXTRARINE PHENYLBUTAZONE [Suspect]
     Route: 050
     Dates: start: 20050801

REACTIONS (9)
  - BLOOD CREATINE INCREASED [None]
  - GENERAL PHYSICAL HEALTH DETERIORATION [None]
  - NEPHRITIS INTERSTITIAL [None]
  - NEPHROGENIC DIABETES INSIPIDUS [None]
  - NIGHT SWEATS [None]
  - RENAL FAILURE ACUTE [None]
  - SARCOIDOSIS [None]
  - VOMITING [None]
  - WEIGHT DECREASED [None]
